FAERS Safety Report 4962331-6 (Version None)
Quarter: 2006Q2

REPORT INFORMATION
  Report Type: 
  Country: None (occurrence: None)
  Receive Date: 20060403
  Receipt Date: 20060403
  Transmission Date: 20061013
  Serious: Yes (Other)
  Sender: FDA-Public Use
  Company Number: None

PATIENT
  Sex: Male
  Weight: 77.3837 kg

DRUGS (8)
  1. LISINOPRIL [Suspect]
     Indication: DIABETES MELLITUS
     Dosage: 1/2 TAB DAILY
     Dates: start: 20050106, end: 20050909
  2. LISINOPRIL [Suspect]
     Indication: HYPERTENSION
     Dosage: 1/2 TAB DAILY
     Dates: start: 20050106, end: 20050909
  3. ASPIRIN [Concomitant]
  4. DEXTROSE [Concomitant]
  5. HYDROCHLOROTHIAZIDE [Concomitant]
  6. IBUPROFEN [Concomitant]
  7. NPH INSULIN [Concomitant]
  8. MULTIVITAMINS W/MINERALS [Concomitant]

REACTIONS (1)
  - ANGIONEUROTIC OEDEMA [None]
